FAERS Safety Report 20733515 (Version 4)
Quarter: 2022Q2

REPORT INFORMATION
  Report Type: Report from Study
  Country: IT (occurrence: IT)
  Receive Date: 20220421
  Receipt Date: 20220603
  Transmission Date: 20220721
  Serious: Yes (Other)
  Sender: FDA-Public Use
  Company Number: IT-NOVARTISPH-NVSC2022IT091262

PATIENT
  Sex: Male

DRUGS (12)
  1. CAPMATINIB [Suspect]
     Active Substance: CAPMATINIB
     Indication: Non-small cell lung cancer
     Dosage: 400 MG, BID
     Route: 048
     Dates: start: 20220325, end: 20220414
  2. CAPMATINIB [Suspect]
     Active Substance: CAPMATINIB
     Dosage: 300 UNK, BID
     Route: 065
  3. ASPIRIN DL-LYSINE [Concomitant]
     Active Substance: ASPIRIN DL-LYSINE
     Indication: Product used for unknown indication
     Dosage: UNK (1 BUST 12:00 1/DIE)
     Route: 065
  4. LANSOPRAZOLE [Concomitant]
     Active Substance: LANSOPRAZOLE
     Indication: Product used for unknown indication
     Dosage: 1 DOSAGE FORM (08:00 1 V. AL D?)
     Route: 065
  5. ENOXAPARIN SODIUM [Concomitant]
     Active Substance: ENOXAPARIN SODIUM
     Indication: Product used for unknown indication
     Dosage: UNK (1 FSIR 18:00 1/DIE)
     Route: 065
  6. LYRICA [Concomitant]
     Active Substance: PREGABALIN
     Indication: Product used for unknown indication
     Dosage: 1 DOSAGE FORM (14:00 1 /DIE)
     Route: 065
  7. COLIREI [Concomitant]
     Indication: Product used for unknown indication
     Dosage: UNK (BUST 06:00-18:00 2/DIE)
     Route: 065
  8. FOLINA [Concomitant]
     Indication: Product used for unknown indication
     Dosage: 1 DOSAGE FORM (08:00 1/DIE)
     Route: 065
  9. DEXAMETHASONE [Concomitant]
     Active Substance: DEXAMETHASONE
     Indication: Product used for unknown indication
     Dosage: UNK (SOLDESAM 0,2 % GOCCE 10 ML) 64 GTT 08:00 1/DIE
     Route: 065
  10. CHOLECALCIFEROL [Concomitant]
     Active Substance: CHOLECALCIFEROL
     Indication: Product used for unknown indication
     Dosage: UNK (100000 1/MONTH)
     Route: 065
  11. CALCIUM [Concomitant]
     Active Substance: CALCIUM
     Indication: Product used for unknown indication
     Dosage: 1 DOSAGE FORM (1 CP/DIE)
     Route: 065
  12. MORPHINE SULFATE [Concomitant]
     Active Substance: MORPHINE SULFATE
     Indication: Product used for unknown indication
     Dosage: UNK (10 MG IN NEED)
     Route: 065

REACTIONS (3)
  - Neutropenia [Recovered/Resolved]
  - Toxicity to various agents [Unknown]
  - COVID-19 [Unknown]

NARRATIVE: CASE EVENT DATE: 20220414
